FAERS Safety Report 26013232 (Version 1)
Quarter: 2025Q4

REPORT INFORMATION
  Report Type: Spontaneous
  Country: US (occurrence: US)
  Receive Date: 20251107
  Receipt Date: 20251107
  Transmission Date: 20260118
  Serious: No
  Sender: SANOFI AVENTIS
  Company Number: US-SA-2025SA326309

PATIENT
  Sex: Female

DRUGS (15)
  1. DUPIXENT [Suspect]
     Active Substance: DUPILUMAB
     Indication: Atrial fibrillation
     Dosage: 300 MG, QOW
     Route: 058
  2. BENADRYL [Concomitant]
     Active Substance: DIPHENHYDRAMINE HYDROCHLORIDE
  3. BIOTIN [Concomitant]
     Active Substance: BIOTIN
  4. CALCIUM [Concomitant]
     Active Substance: CALCIUM
  5. ELIQUIS [Concomitant]
     Active Substance: APIXABAN
  6. LEVOTHYROXINE [Concomitant]
     Active Substance: LEVOTHYROXINE
  7. LOSARTAN POTASSIUM [Concomitant]
     Active Substance: LOSARTAN POTASSIUM
  8. MAGNESIUM [MAGNESIUM CHELATE] [Concomitant]
  9. MELATONIN [Concomitant]
     Active Substance: MELATONIN
  10. METOPROLOL [Concomitant]
     Active Substance: METOPROLOL
  11. VITAMINS NOS [Concomitant]
     Active Substance: VITAMINS
  12. PROBIOTICS NOS [Concomitant]
     Active Substance: PROBIOTICS NOS
  13. ROSUVASTATIN [Concomitant]
     Active Substance: ROSUVASTATIN
  14. CYANOCOBALAMIN [Concomitant]
     Active Substance: CYANOCOBALAMIN
  15. VITAMIN D3 [Concomitant]
     Active Substance: CHOLECALCIFEROL

REACTIONS (2)
  - Pruritus [Unknown]
  - Product use in unapproved indication [Unknown]
